FAERS Safety Report 8137524-X (Version None)
Quarter: 2012Q1

REPORT INFORMATION
  Report Type: 
  Country: None (occurrence: None)
  Receive Date: 20120215
  Receipt Date: 20120203
  Transmission Date: 20120608
  Serious: Yes (Other)
  Sender: FDA-Public Use
  Company Number: GB-UCBSA-051166

PATIENT
  Age: 66 Year
  Sex: Female

DRUGS (7)
  1. FOLIC ACID [Concomitant]
     Indication: RHEUMATOID ARTHRITIS
  2. METHOTREXATE [Concomitant]
     Indication: RHEUMATOID ARTHRITIS
     Route: 048
     Dates: start: 20070101
  3. PANTOPRAZOLE [Concomitant]
  4. SIMVASTATIN [Concomitant]
  5. METFORMIN HCL [Concomitant]
  6. GLICLAZIDE [Concomitant]
  7. CERTOLIZUMAB [Suspect]
     Indication: RHEUMATOID ARTHRITIS
     Route: 058
     Dates: start: 20110606, end: 20111114

REACTIONS (3)
  - LYMPHOCYTE COUNT DECREASED [None]
  - BLOOD ALKALINE PHOSPHATASE INCREASED [None]
  - PLATELET COUNT DECREASED [None]
